FAERS Safety Report 5594017-1 (Version None)
Quarter: 2008Q1

REPORT INFORMATION
  Report Type: 
  Country: None (occurrence: None)
  Receive Date: 20080114
  Receipt Date: 20061010
  Transmission Date: 20080703
  Serious: Yes (Death, Other)
  Sender: FDA-Public Use
  Company Number: 2006VX001797

PATIENT
  Age: 45 Year
  Sex: Female

DRUGS (2)
  1. PROSTIGMIN (NEOSTIGMINE BROMIDE) [Suspect]
  2. ALDOMET [Suspect]

REACTIONS (2)
  - COMPLETED SUICIDE [None]
  - INTENTIONAL OVERDOSE [None]
